FAERS Safety Report 26165237 (Version 1)
Quarter: 2025Q4

REPORT INFORMATION
  Report Type: Spontaneous
  Country: US (occurrence: US)
  Receive Date: 20251216
  Receipt Date: 20251216
  Transmission Date: 20260117
  Serious: Yes (Death, Other)
  Sender: SAMSUNG BIOEPIS
  Company Number: US-SAMSUNG BIOEPIS-SB-2025-41404

PATIENT
  Age: 65 Year
  Sex: Female

DRUGS (1)
  1. INFLIXIMAB [Suspect]
     Active Substance: INFLIXIMAB
     Indication: Colitis ulcerative

REACTIONS (10)
  - Disseminated aspergillosis [Fatal]
  - Pneumonia [Unknown]
  - Acute respiratory failure [Not Recovered/Not Resolved]
  - Encephalopathy [Not Recovered/Not Resolved]
  - Sinus tachycardia [Unknown]
  - Generalised oedema [Unknown]
  - Rales [Unknown]
  - Drug ineffective [Unknown]
  - Pulmonary mass [Unknown]
  - Pleural effusion [Unknown]
